FAERS Safety Report 25590301 (Version 2)
Quarter: 2025Q3

REPORT INFORMATION
  Report Type: Spontaneous
  Country: JP (occurrence: JP)
  Receive Date: 20250722
  Receipt Date: 20250902
  Transmission Date: 20251020
  Serious: Yes (Hospitalization)
  Sender: NOVARTIS
  Company Number: JP-002147023-NVSJ2025JP007437

PATIENT
  Age: 39 Year
  Sex: Male

DRUGS (3)
  1. ENTRESTO [Suspect]
     Active Substance: SACUBITRIL\VALSARTAN
     Indication: Hypertension
     Route: 048
     Dates: start: 20250610, end: 20250709
  2. ADALAT CC [Suspect]
     Active Substance: NIFEDIPINE
     Indication: Hypertension
     Route: 048
     Dates: end: 20250709
  3. ESAXERENONE [Suspect]
     Active Substance: ESAXERENONE
     Indication: Hypertension
     Route: 048
     Dates: end: 20250709

REACTIONS (2)
  - Acute kidney injury [Recovered/Resolved]
  - Heat illness [Recovered/Resolved]

NARRATIVE: CASE EVENT DATE: 20250709
